FAERS Safety Report 9595480 (Version 1)
Quarter: 2013Q3

REPORT INFORMATION
  Report Type: Spontaneous
  Country: US (occurrence: None)
  Receive Date: 20130927
  Receipt Date: 20130927
  Transmission Date: 20140515
  Serious: Yes (Other)
  Sender: FDA-Public Use
  Company Number: CABO-13002975

PATIENT
  Age: 48 Year
  Sex: Female

DRUGS (11)
  1. COMETRIQ [Suspect]
     Indication: BRAIN NEOPLASM MALIGNANT
     Route: 048
     Dates: start: 20130603, end: 20130626
  2. TYLENOL (PARACETAMOL) [Concomitant]
  3. CLONAZEPAM (CLONAZEPAM) (CLONAZEPAM) [Concomitant]
  4. DECADRON (DEXAMETHASONE) [Concomitant]
  5. LAMICTAL (LAMOTRIGINE) [Concomitant]
  6. KEPPRA (LEVETIRACETAM) [Concomitant]
  7. ATIVAN (LORAZEPAM) [Concomitant]
  8. VITAMIN B (VITAMIN B COMPLEX) [Concomitant]
  9. CALCIUM (CALCIUM) [Concomitant]
  10. VITAMIN D (COLECALCIFEROL) [Concomitant]
  11. AVASTIN (BEVACIZUMAB) [Concomitant]

REACTIONS (3)
  - Osteomyelitis [None]
  - Wound dehiscence [None]
  - Wound infection [None]
